FAERS Safety Report 11516951 (Version 1)
Quarter: 2015Q3

REPORT INFORMATION
  Report Type: Spontaneous
  Country: US (occurrence: None)
  Receive Date: 20150916
  Receipt Date: 20150916
  Transmission Date: 20151125
  Serious: Yes (Hospitalization, Disabling)
  Sender: FDA-Public Use
  Company Number: None

PATIENT
  Age: 89 Year
  Sex: Female
  Weight: 55.34 kg

DRUGS (4)
  1. LOSARTIN POTASSIUM [Concomitant]
  2. LIPITOR [Suspect]
     Active Substance: ATORVASTATIN CALCIUM
     Indication: BLOOD CHOLESTEROL INCREASED
     Route: 048
  3. VITAMIN D [Concomitant]
     Active Substance: CHOLECALCIFEROL
  4. GERITOL [Concomitant]
     Active Substance: MINERALS\VITAMINS

REACTIONS (6)
  - Malaise [None]
  - Musculoskeletal stiffness [None]
  - Decreased appetite [None]
  - Back pain [None]
  - Muscular weakness [None]
  - Chromaturia [None]

NARRATIVE: CASE EVENT DATE: 20150612
